FAERS Safety Report 8960743 (Version 1)
Quarter: 2012Q4

REPORT INFORMATION
  Report Type: 
  Country: US (occurrence: US)
  Receive Date: 20121212
  Receipt Date: 20121212
  Transmission Date: 20130627
  Serious: No
  Sender: FDA-Public Use
  Company Number: US-ASTRAZENECA-2012SE90403

PATIENT
  Sex: Female

DRUGS (6)
  1. NEXIUM [Suspect]
     Route: 048
     Dates: start: 2003, end: 2012
  2. OMEPRAZOLE [Suspect]
     Route: 048
  3. ZEGERID [Suspect]
     Route: 065
     Dates: start: 2003, end: 2012
  4. CIMETIDINE [Concomitant]
  5. PREVACID [Concomitant]
  6. ZANTAC [Concomitant]

REACTIONS (12)
  - Menopause [Unknown]
  - Gastrooesophageal reflux disease [Unknown]
  - Pain [Unknown]
  - Feeling abnormal [Unknown]
  - Decreased appetite [Unknown]
  - Sleep disorder due to a general medical condition [Recovered/Resolved]
  - Throat irritation [Unknown]
  - Malaise [Unknown]
  - Headache [Unknown]
  - Abdominal pain upper [Unknown]
  - Nausea [Unknown]
  - Drug ineffective [Unknown]
